FAERS Safety Report 7107583-1 (Version None)
Quarter: 2010Q4

REPORT INFORMATION
  Report Type: 
  Country: None (occurrence: None)
  Receive Date: 20101117
  Receipt Date: 20101110
  Transmission Date: 20110411
  Serious: No
  Sender: FDA-Public Use
  Company Number: US-PFIZER INC-2010145328

PATIENT
  Sex: Male
  Weight: 126.98 kg

DRUGS (6)
  1. VIAGRA [Suspect]
     Indication: ERECTILE DYSFUNCTION
     Dosage: 50 MG, AS NEEDED
     Route: 048
     Dates: start: 20101109
  2. LISINOPRIL [Concomitant]
     Dosage: UNK
  3. LAMICTAL [Concomitant]
     Dosage: UNK
  4. ZANAFLEX [Concomitant]
     Dosage: UNK
  5. LITHIUM [Concomitant]
     Dosage: UNK
  6. ABILIFY [Concomitant]
     Dosage: UNK

REACTIONS (1)
  - DRUG INEFFECTIVE [None]
